FAERS Safety Report 16235464 (Version 1)
Quarter: 2019Q2

REPORT INFORMATION
  Report Type: Spontaneous
  Country: US (occurrence: US)
  Receive Date: 20190424
  Receipt Date: 20190424
  Transmission Date: 20190711
  Serious: No
  Sender: FDA-Public Use
  Company Number: US-VIFOR (INTERNATIONAL) INC.-VIT-2019-03749

PATIENT
  Age: 66 Year
  Sex: Female

DRUGS (8)
  1. VYTORIN [Concomitant]
     Active Substance: EZETIMIBE\SIMVASTATIN
  2. ASPIRIN 81 [Concomitant]
     Active Substance: ASPIRIN
  3. BENICAR [Concomitant]
     Active Substance: OLMESARTAN MEDOXOMIL
  4. CB12-ACTIVE [Concomitant]
  5. VITAMIN D2 [Concomitant]
     Active Substance: ERGOCALCIFEROL
  6. VELTASSA [Suspect]
     Active Substance: PATIROMER
     Indication: HYPERKALAEMIA
     Dosage: 2-3 TIMES PER WEEK
     Route: 048
     Dates: start: 20160618
  7. COLACE [Concomitant]
     Active Substance: DOCUSATE SODIUM
  8. FUROSEMIDE. [Concomitant]
     Active Substance: FUROSEMIDE

REACTIONS (2)
  - Inappropriate schedule of product administration [Unknown]
  - Mouth swelling [Unknown]

NARRATIVE: CASE EVENT DATE: 20160618
